FAERS Safety Report 6068871-3 (Version None)
Quarter: 2009Q1

REPORT INFORMATION
  Report Type: 
  Country: None (occurrence: None)
  Receive Date: 20090206
  Receipt Date: 20090128
  Transmission Date: 20090719
  Serious: Yes (Hospitalization)
  Sender: FDA-Public Use
  Company Number: DE-JNJFOC-20090107036

PATIENT
  Age: 66 Year
  Sex: Female

DRUGS (3)
  1. INFLIXIMAB [Suspect]
     Indication: RHEUMATOID ARTHRITIS
     Route: 042
  2. ANTIMALARIALS [Concomitant]
  3. AZATHIOPRINE [Concomitant]

REACTIONS (1)
  - BREAST CANCER STAGE II [None]
